FAERS Safety Report 24268008 (Version 2)
Quarter: 2024Q3

REPORT INFORMATION
  Report Type: Spontaneous
  Country: CZ (occurrence: CZ)
  Receive Date: 20240830
  Receipt Date: 20240918
  Transmission Date: 20241016
  Serious: Yes (Hospitalization, Other)
  Sender: SANOFI AVENTIS
  Company Number: CZ-MLMSERVICE-20240821-PI165821-00108-4

PATIENT
  Age: 45 Year
  Sex: Male

DRUGS (16)
  1. ZOLPIDEM TARTRATE [Suspect]
     Active Substance: ZOLPIDEM TARTRATE
     Indication: Schizophrenia
     Dosage: UNK
     Dates: start: 201802
  2. ZOLPIDEM TARTRATE [Suspect]
     Active Substance: ZOLPIDEM TARTRATE
     Indication: Drug abuse
  3. CLOZAPINE [Suspect]
     Active Substance: CLOZAPINE
     Indication: Schizophrenia
     Dosage: 400 MG, QD, TITRATED
     Dates: start: 2014, end: 2014
  4. CLOZAPINE [Suspect]
     Active Substance: CLOZAPINE
     Indication: Drug abuse
     Dosage: 450 MG, QD
     Dates: start: 2014
  5. CLOZAPINE [Suspect]
     Active Substance: CLOZAPINE
     Dosage: 100 MG, QD, GRADUALLY REDUCED IN THE EVENING
     Route: 048
     Dates: start: 2014
  6. CLOZAPINE [Suspect]
     Active Substance: CLOZAPINE
     Dosage: 300 MG, QD, GRADUALLY INCREASED
     Dates: start: 2018, end: 2018
  7. CLOZAPINE [Suspect]
     Active Substance: CLOZAPINE
     Dosage: 400 MG, QD, AT DISCHARGE
     Dates: end: 201903
  8. CLOZAPINE [Suspect]
     Active Substance: CLOZAPINE
     Dosage: 350 MG, QD, GRADUALLY REDUCING
     Dates: start: 201903, end: 2019
  9. CLOZAPINE [Suspect]
     Active Substance: CLOZAPINE
     Dosage: 50 MG, QD, IN THE EVENING
     Dates: start: 201910, end: 201912
  10. CLOZAPINE [Suspect]
     Active Substance: CLOZAPINE
     Dosage: 100 MG, QD, IN THE EVENING
     Dates: start: 201912
  11. RISPERIDONE [Concomitant]
     Active Substance: RISPERIDONE
     Indication: Drug abuse
     Dosage: 37.5 MG, QOW
     Dates: start: 201711, end: 2018
  12. RISPERIDONE [Concomitant]
     Active Substance: RISPERIDONE
     Indication: Schizophrenia
     Dosage: 50 MG, QOW, DEPOT
     Dates: start: 2014, end: 201711
  13. OXAZEPAM [Concomitant]
     Active Substance: OXAZEPAM
     Indication: Anxiety
     Dosage: 10 MG, QD, IN THE EVENING
     Dates: start: 201711
  14. OXAZEPAM [Concomitant]
     Active Substance: OXAZEPAM
     Indication: Insomnia
  15. PROMETHAZINE [Concomitant]
     Active Substance: PROMETHAZINE HYDROCHLORIDE
     Indication: Insomnia
     Dosage: 50 MG, QD,IN THE EVENING
     Dates: start: 2018
  16. PANTOPRAZOLE [Concomitant]
     Active Substance: PANTOPRAZOLE
     Indication: Gastrooesophageal reflux disease
     Dosage: 40 MG, QD,IN THE MORNING
     Dates: start: 201711

REACTIONS (3)
  - Schizophrenia [Recovering/Resolving]
  - Condition aggravated [Recovering/Resolving]
  - Hallucination [Recovered/Resolved]

NARRATIVE: CASE EVENT DATE: 20180101
